FAERS Safety Report 9718200 (Version 3)
Quarter: 2014Q1

REPORT INFORMATION
  Report Type: Report from Study
  Country: US (occurrence: US)
  Receive Date: 20131127
  Receipt Date: 20140130
  Transmission Date: 20141002
  Serious: Yes (Hospitalization, Other)
  Sender: FDA-Public Use
  Company Number: US-ELI_LILLY_AND_COMPANY-US201311006862

PATIENT
  Age: 63 Year
  Sex: Female

DRUGS (10)
  1. TERIPARATIDE [Suspect]
     Indication: OSTEOPOROSIS
     Dosage: 20 UG, QD
     Route: 058
     Dates: start: 201211, end: 201309
  2. TERIPARATIDE [Suspect]
     Indication: SPINAL FRACTURE
  3. ALPRAZOLAM [Concomitant]
     Indication: PRODUCT USED FOR UNKNOWN INDICATION
     Dosage: 0.5 MG, PRN
     Route: 048
  4. FLUOXETINE [Concomitant]
     Indication: PRODUCT USED FOR UNKNOWN INDICATION
     Dosage: 40 MG, QD
     Route: 048
  5. HYDROCODONE W/ACETAMINOPHEN [Concomitant]
     Indication: PRODUCT USED FOR UNKNOWN INDICATION
     Dosage: 1 DF, EVERY 6 HRS
     Route: 048
  6. LEVETIRACETAM [Concomitant]
     Indication: CONVULSION
     Dosage: 500 MG, BID
     Route: 048
     Dates: end: 2012
  7. LIDODERM [Concomitant]
     Indication: PRODUCT USED FOR UNKNOWN INDICATION
     Dosage: UNK, QD
     Route: 061
  8. SIMVASTATIN [Concomitant]
     Indication: PRODUCT USED FOR UNKNOWN INDICATION
     Dosage: 20 MG, EACH EVENING
     Route: 048
  9. TIZANIDINE [Concomitant]
     Indication: PRODUCT USED FOR UNKNOWN INDICATION
     Dosage: 0.4 MG, EACH EVENING
     Route: 048
  10. TRAZODONE [Concomitant]
     Indication: PRODUCT USED FOR UNKNOWN INDICATION
     Dosage: 300 MG, EACH EVENING
     Route: 048

REACTIONS (18)
  - Failure to thrive [Unknown]
  - Epilepsy [Unknown]
  - Lower limb fracture [Not Recovered/Not Resolved]
  - Fall [Unknown]
  - Ankle fracture [Not Recovered/Not Resolved]
  - Foot fracture [Unknown]
  - Head injury [Unknown]
  - Multiple fractures [Unknown]
  - Fall [Unknown]
  - Limb injury [Unknown]
  - Fall [Unknown]
  - Gait disturbance [Unknown]
  - Dizziness [Unknown]
  - Treatment noncompliance [Unknown]
  - Contusion [Unknown]
  - Excoriation [Unknown]
  - Impaired healing [Unknown]
  - Dizziness [Unknown]
